FAERS Safety Report 4291774-1 (Version None)
Quarter: 2004Q1

REPORT INFORMATION
  Report Type: 
  Country: None (occurrence: None)
  Receive Date: 20040211
  Receipt Date: 20030307
  Transmission Date: 20041129
  Serious: Yes (Other)
  Sender: FDA-Public Use
  Company Number: US-GLAXOSMITHKLINE-A0400602A

PATIENT

DRUGS (2)
  1. IMITREX [Suspect]
     Indication: HEADACHE
     Route: 065
  2. DEXATRIM [Concomitant]

REACTIONS (1)
  - CEREBROVASCULAR ACCIDENT [None]
